FAERS Safety Report 15837562 (Version 1)
Quarter: 2019Q1

REPORT INFORMATION
  Report Type: Spontaneous
  Country: FR (occurrence: FR)
  Receive Date: 20190117
  Receipt Date: 20190117
  Transmission Date: 20190417
  Serious: Yes (Hospitalization, Other)
  Sender: FDA-Public Use
  Company Number: FR-PROVELL PHARMACEUTICALS-2061334

PATIENT
  Sex: Male

DRUGS (2)
  1. EUTHYROX [Suspect]
     Active Substance: LEVOTHYROXINE SODIUM
     Indication: PRODUCT USED FOR UNKNOWN INDICATION
     Dates: start: 20181228
  2. APROVEL [Suspect]
     Active Substance: IRBESARTAN

REACTIONS (3)
  - Respiratory disorder [None]
  - Drug interaction [None]
  - Chest pain [None]

NARRATIVE: CASE EVENT DATE: 201812
